FAERS Safety Report 12658266 (Version 1)
Quarter: 2016Q3

REPORT INFORMATION
  Report Type: Spontaneous
  Country: US (occurrence: US)
  Receive Date: 20160817
  Receipt Date: 20160817
  Transmission Date: 20161109
  Serious: No
  Sender: FDA-Public Use
  Company Number: US-TEVA-576447USA

PATIENT
  Age: 88 Year
  Sex: Male

DRUGS (1)
  1. LISINOPRIL. [Suspect]
     Active Substance: LISINOPRIL
     Indication: BLOOD PRESSURE MEASUREMENT
     Dates: start: 201503

REACTIONS (6)
  - Malaise [Unknown]
  - Flushing [Unknown]
  - Hypertension [Unknown]
  - Dyspnoea [Unknown]
  - Drug ineffective [Unknown]
  - Drug level changed [Unknown]

NARRATIVE: CASE EVENT DATE: 201503
